FAERS Safety Report 10011523 (Version 1)
Quarter: 2014Q1

REPORT INFORMATION
  Report Type: Spontaneous
  Country: US (occurrence: None)
  Receive Date: 20140313
  Receipt Date: 20140313
  Transmission Date: 20141002
  Serious: Yes (Death)
  Sender: FDA-Public Use
  Company Number: None

PATIENT
  Age: 95 Year
  Sex: Female
  Weight: 58.06 kg

DRUGS (2)
  1. RISPERDAL [Suspect]
     Indication: AGGRESSION
     Dates: start: 201310, end: 20141231
  2. RISPERDAL [Suspect]
     Indication: DEMENTIA
     Dates: start: 201310, end: 20141231

REACTIONS (4)
  - Somnolence [None]
  - Hypophagia [None]
  - Fluid intake reduced [None]
  - Fall [None]
